FAERS Safety Report 18690797 (Version 4)
Quarter: 2021Q2

REPORT INFORMATION
  Report Type: Report from Study
  Country: US (occurrence: US)
  Receive Date: 20210101
  Receipt Date: 20210507
  Transmission Date: 20210717
  Serious: Yes (Other)
  Sender: FDA-Public Use
  Company Number: US-ROCHE-2742021

PATIENT
  Age: 67 Year
  Sex: Male
  Weight: 85.6 kg

DRUGS (5)
  1. GEMCITABINE HYDROCHLORIDE. [Suspect]
     Active Substance: GEMCITABINE HYDROCHLORIDE
     Indication: BLADDER TRANSITIONAL CELL CARCINOMA
     Dosage: 27 MG/M2 IV TWICE WEEKLY FOR SIX WEEKS
     Route: 042
     Dates: start: 20200529
  2. MITOMYCIN C [Suspect]
     Active Substance: MITOMYCIN
     Indication: BLADDER TRANSITIONAL CELL CARCINOMA
     Dosage: 12 MG/M2 IV GIVEN ON SAME DAY AS DOSE 1 OF RT
     Route: 042
     Dates: start: 20200529
  3. ATEZOLIZUMAB. [Suspect]
     Active Substance: ATEZOLIZUMAB
     Indication: BLADDER TRANSITIONAL CELL CARCINOMA
     Dosage: ON DAY 1,?LAST ADMINISTERED DATE: 29/MAY/2020
     Route: 042
     Dates: start: 20200529
  4. CISPLATIN. [Suspect]
     Active Substance: CISPLATIN
     Indication: BLADDER TRANSITIONAL CELL CARCINOMA
     Dosage: 35 MG/M2 IV WEEKLY FOR SIX WEEKS ?LAST ADMINISTERED DATE: 05/JUN/2020
     Route: 042
     Dates: start: 20200529
  5. 5?FLUOROURACIL [Suspect]
     Active Substance: FLUOROURACIL
     Indication: BLADDER TRANSITIONAL CELL CARCINOMA
     Dosage: 500 MG/M2 IV GIVEN ON SAME DAYS AS DOSES 1?5 AND 16?20 OF RT
     Route: 042
     Dates: start: 20200529

REACTIONS (1)
  - Lymphopenia [Recovering/Resolving]

NARRATIVE: CASE EVENT DATE: 20200612
